FAERS Safety Report 23866006 (Version 1)
Quarter: 2024Q2

REPORT INFORMATION
  Report Type: Spontaneous
  Country: US (occurrence: None)
  Receive Date: 20240517
  Receipt Date: 20240517
  Transmission Date: 20240716
  Serious: Yes (Other)
  Sender: FDA-Public Use
  Company Number: 2024A112668

PATIENT

DRUGS (3)
  1. QUETIAPINE [Suspect]
     Active Substance: QUETIAPINE
     Indication: Rheumatoid arthritis
     Dosage: UNKNOWN
     Route: 048
  2. TAMOXIFEN [Suspect]
     Active Substance: TAMOXIFEN
     Indication: Neoplasm malignant
     Dosage: UNKNOWN
     Route: 048
  3. XELJANZ [Suspect]
     Active Substance: TOFACITINIB CITRATE
     Dosage: 11MG UNKNOWN

REACTIONS (2)
  - Neoplasm malignant [Unknown]
  - Pneumonia [Unknown]
